FAERS Safety Report 8352101 (Version 4)
Quarter: 2013Q4

REPORT INFORMATION
  Report Type: Spontaneous
  Country: GB (occurrence: GB)
  Receive Date: 20120124
  Receipt Date: 20131004
  Transmission Date: 20140711
  Serious: Yes (Other)
  Sender: FDA-Public Use
  Company Number: GB-WATSON-2012-00381

PATIENT
  Age: 18 Year
  Sex: Female
  Weight: 54 kg

DRUGS (6)
  1. LAMOTRIGINE (UNKNOWN) [Suspect]
     Indication: EPILEPSY
     Dosage: 200 MG, BID
     Route: 048
     Dates: start: 201011
  2. KEPPRA [Interacting]
     Indication: PRODUCT USED FOR UNKNOWN INDICATION
     Dosage: UNK
     Route: 065
  3. NEXPLANON [Interacting]
     Indication: CONTRACEPTION
     Dosage: 68 MG, UNKNOWN, IMPLANT
     Route: 059
     Dates: start: 201103
  4. LORATADINE [Concomitant]
     Indication: SEASONAL ALLERGY
     Dosage: 10 MG DAILY
     Route: 048
     Dates: start: 201105
  5. DOXYCYCLINE [Concomitant]
     Indication: SINUSITIS
     Dosage: UNK
     Route: 048
  6. DOXYCYCLINE [Concomitant]
     Route: 048

REACTIONS (2)
  - Epilepsy [Not Recovered/Not Resolved]
  - Drug interaction [Not Recovered/Not Resolved]
